FAERS Safety Report 5211436-3 (Version None)
Quarter: 2006Q4

REPORT INFORMATION
  Report Type: 
  Country: None (occurrence: None)
  Receive Date: 20061115
  Receipt Date: 20060801
  Transmission Date: 20070319
  Serious: Yes (Hospitalization, Other)
  Sender: FDA-Public Use
  Company Number: 200615638US

PATIENT
  Age: 49 Year
  Sex: Female

DRUGS (11)
  1. APIDRA [Suspect]
     Indication: DIABETES MELLITUS INSULIN-DEPENDENT
     Dates: end: 20060701
  2. APIDRA [Suspect]
     Indication: DIABETES MELLITUS INSULIN-DEPENDENT
     Dates: end: 20060701
  3. SIROLIMUS (RAPAMUNE) [Concomitant]
  4. FOSAMAX [Concomitant]
  5. VALSARTAN (DIOVANE) [Concomitant]
  6. FUROSEMIDE [Concomitant]
  7. FERROUS SULFATE TAB [Concomitant]
  8. GLUCAGON [Concomitant]
  9. PROGRAF [Concomitant]
  10. COLECALCIFEROL, CALCIUM CARBONATE (CALCIUM CARBONATE W/COLECALCIFEROL) [Concomitant]
  11. ROSUVASTATIN (CRESTOR / 01588601/) [Concomitant]

REACTIONS (7)
  - BLOOD CREATINE INCREASED [None]
  - DEPRESSED LEVEL OF CONSCIOUSNESS [None]
  - HYPOGLYCAEMIA [None]
  - HYPOGLYCAEMIC COMA [None]
  - PYELONEPHRITIS [None]
  - PYREXIA [None]
  - URINE ANALYSIS ABNORMAL [None]
